FAERS Safety Report 5442586-4 (Version None)
Quarter: 2007Q3

REPORT INFORMATION
  Report Type: 
  Country: None (occurrence: None)
  Receive Date: 20070904
  Receipt Date: 20070901
  Transmission Date: 20080115
  Serious: Yes (Other)
  Sender: FDA-Public Use
  Company Number: CH-SHR-CH-2007-010649

PATIENT
  Age: 40 Year
  Sex: Female

DRUGS (1)
  1. MIRANOVA (21) [Suspect]

REACTIONS (1)
  - LIVER DISORDER [None]
